FAERS Safety Report 9155184 (Version 3)
Quarter: 2013Q1

REPORT INFORMATION
  Report Type: Spontaneous
  Country: SE (occurrence: None)
  Receive Date: 20130208
  Receipt Date: 20130211
  Transmission Date: 20140127
  Serious: No
  Sender: FDA-Public Use
  Company Number: 1301SWE011803

PATIENT
  Sex: 0

DRUGS (1)
  1. CEDAX (CEFTIBUTEN) ORAL SUSPENSION, 60 ML [Suspect]
     Route: 048

REACTIONS (2)
  - Drug dose omission [None]
  - Drug dispensing error [None]
